FAERS Safety Report 10076021 (Version 1)
Quarter: 2014Q2

REPORT INFORMATION
  Report Type: Spontaneous
  Country: US (occurrence: None)
  Receive Date: 20140410
  Receipt Date: 20140410
  Transmission Date: 20141212
  Serious: Yes (Other)
  Sender: FDA-Public Use
  Company Number: ADE14-011

PATIENT
  Age: 75 Year
  Sex: Male
  Weight: 96.9 kg

DRUGS (7)
  1. HEPARIN SODIUM [Suspect]
     Indication: AORTIC VALVE REPLACEMENT
     Dates: start: 20140402, end: 20140402
  2. HEPARIN SODIUM [Suspect]
     Indication: AORTIC VALVE REPLACEMENT
     Dates: start: 20140402, end: 20140402
  3. ASPIRIN 81 MG [Concomitant]
  4. MULTIVITAMIN DAILY [Concomitant]
  5. MAXZIDE-25 [Concomitant]
  6. SIMVASTATIN 80MG NORTHSTAR [Concomitant]
  7. FLAXSEED OIL 1000MG [Concomitant]

REACTIONS (1)
  - Drug effect decreased [None]
